FAERS Safety Report 4594401-9 (Version None)
Quarter: 2005Q1

REPORT INFORMATION
  Report Type: 
  Country: None (occurrence: None)
  Receive Date: 20050301
  Receipt Date: 20040105
  Transmission Date: 20050727
  Serious: No
  Sender: FDA-Public Use
  Company Number: S2003US14034

PATIENT
  Sex: Female

DRUGS (1)
  1. VALTREX [Suspect]
     Route: 048
     Dates: start: 20030101

REACTIONS (5)
  - ANAL DISCOMFORT [None]
  - BUTTOCK PAIN [None]
  - CONSTIPATION [None]
  - PAIN IN EXTREMITY [None]
  - URETHRAL PAIN [None]
